FAERS Safety Report 11809888 (Version 1)
Quarter: 2015Q4

REPORT INFORMATION
  Report Type: Report from Study
  Country: BW (occurrence: BW)
  Receive Date: 20151208
  Receipt Date: 20151208
  Transmission Date: 20160305
  Serious: Yes (Other)
  Sender: FDA-Public Use
  Company Number: BW-BRISTOL-MYERS SQUIBB COMPANY-13606074

PATIENT
  Age: 25 Year
  Sex: Female

DRUGS (4)
  1. VIRAMUNE [Suspect]
     Active Substance: NEVIRAPINE
     Indication: HIV INFECTION
     Dosage: 200 MG, QD
     Route: 048
     Dates: start: 20050106
  2. COMBIVIR [Suspect]
     Active Substance: LAMIVUDINE\ZIDOVUDINE
     Indication: HIV INFECTION
     Dosage: 2 DF, QD
     Route: 048
     Dates: start: 20041011
  3. VIRAMUNE [Suspect]
     Active Substance: NEVIRAPINE
     Dosage: 400 MG, QD
     Route: 048
     Dates: start: 20050120
  4. EFAVIRENZ [Suspect]
     Active Substance: EFAVIRENZ
     Indication: HIV INFECTION
     Dosage: 600 MG, QD
     Route: 048
     Dates: start: 20041011, end: 20050106

REACTIONS (2)
  - Pregnancy [Recovered/Resolved]
  - Stillbirth [Unknown]

NARRATIVE: CASE EVENT DATE: 20050623
